FAERS Safety Report 11886324 (Version 1)
Quarter: 2016Q1

REPORT INFORMATION
  Report Type: Spontaneous
  Country: EG (occurrence: EG)
  Receive Date: 20160104
  Receipt Date: 20160104
  Transmission Date: 20160526
  Serious: Yes (Disabling)
  Sender: FDA-Public Use
  Company Number: EG-SA-2015SA222857

PATIENT
  Age: 53 Year
  Sex: Female

DRUGS (1)
  1. TAXOTERE [Suspect]
     Active Substance: DOCETAXEL
     Indication: OVARIAN CANCER
     Route: 065

REACTIONS (3)
  - Mucosal infection [Unknown]
  - Paralysis [Unknown]
  - Pruritus [Unknown]

NARRATIVE: CASE EVENT DATE: 20151229
